FAERS Safety Report 8214967-7 (Version None)
Quarter: 2012Q1

REPORT INFORMATION
  Report Type: 
  Country: None (occurrence: None)
  Receive Date: 20120316
  Receipt Date: 20120307
  Transmission Date: 20120608
  Serious: Yes (Other)
  Sender: FDA-Public Use
  Company Number: JP-JNJFOC-20120304901

PATIENT
  Age: 4 Year
  Sex: Female

DRUGS (5)
  1. TPN [Suspect]
     Indication: DIARRHOEA
     Route: 065
  2. LOPERAMIDE HCL [Suspect]
     Indication: DIARRHOEA
     Route: 048
  3. ALBUMIN TANNATE [Suspect]
     Indication: DIARRHOEA
     Route: 065
  4. RACOL [Suspect]
     Indication: DIARRHOEA
     Route: 065
  5. AN UNKNOWN MEDICATION [Suspect]
     Indication: DIARRHOEA
     Route: 065

REACTIONS (3)
  - HAEMATOCHEZIA [None]
  - ABDOMINAL DISTENSION [None]
  - DIARRHOEA [None]
